FAERS Safety Report 6916328-7 (Version None)
Quarter: 2010Q3

REPORT INFORMATION
  Report Type: 
  Country: None (occurrence: None)
  Receive Date: 20100804
  Receipt Date: 20100722
  Transmission Date: 20110219
  Serious: Yes (Hospitalization, Other)
  Sender: FDA-Public Use
  Company Number: 7012116

PATIENT
  Age: 46 Year
  Sex: Female

DRUGS (7)
  1. REBIF [Suspect]
     Indication: RELAPSING-REMITTING MULTIPLE SCLEROSIS
     Dosage: 22 MCG, 3 IN 1 WK, SUBCUTANEOUS
     Route: 058
     Dates: start: 20040917
  2. BACLOFEN [Concomitant]
  3. RIVOTRIL (CLONAZEPAM)(CLONAZEPAM) [Concomitant]
  4. PURAN T4 (LEVOTHYROXINE) (LEVOTHYROXINE SODIUM) [Concomitant]
  5. CAPTOPRIL [Concomitant]
  6. TEGRETOL [Concomitant]
  7. PHENOBARBITAL TAB [Concomitant]

REACTIONS (10)
  - CONDITION AGGRAVATED [None]
  - CONTUSION [None]
  - EMOTIONAL DISORDER [None]
  - EPILEPSY [None]
  - FALL [None]
  - MARITAL PROBLEM [None]
  - NERVOUSNESS [None]
  - PYELONEPHRITIS [None]
  - SKIN LACERATION [None]
  - URINARY TRACT INFECTION [None]
